FAERS Safety Report 18072411 (Version 1)
Quarter: 2020Q3

REPORT INFORMATION
  Report Type: Spontaneous
  Country: US (occurrence: US)
  Receive Date: 20200726
  Receipt Date: 20200726
  Transmission Date: 20201103
  Serious: Yes (Other)
  Sender: FDA-Public Use
  Company Number: None

PATIENT
  Age: 68 Year
  Sex: Male

DRUGS (1)
  1. TESTOSTERONE CYPIONATE. [Suspect]
     Active Substance: TESTOSTERONE CYPIONATE
     Indication: BLOOD TESTOSTERONE DECREASED
     Dosage: ?          OTHER FREQUENCY:TWICE WEEKLY;?
     Route: 030

REACTIONS (3)
  - Pain [None]
  - Infection [None]
  - Scleroderma [None]

NARRATIVE: CASE EVENT DATE: 20200725
